FAERS Safety Report 6442205-4 (Version None)
Quarter: 2009Q4

REPORT INFORMATION
  Report Type: 
  Country: None (occurrence: None)
  Receive Date: 20091112
  Receipt Date: 20091103
  Transmission Date: 20100525
  Serious: Yes (Other)
  Sender: FDA-Public Use
  Company Number: ADR50132009

PATIENT
  Sex: Female

DRUGS (1)
  1. ALENDRON BETA EINMAL WOCHENTLICH 70 MG TABLETTEN [Suspect]
     Dosage: 70 MG, ORAL
     Route: 048

REACTIONS (2)
  - HYPOGLYCAEMIA [None]
  - TOOTH DISORDER [None]
